FAERS Safety Report 21413556 (Version 1)
Quarter: 2022Q4

REPORT INFORMATION
  Report Type: Spontaneous
  Country: CA (occurrence: CA)
  Receive Date: 20221006
  Receipt Date: 20221006
  Transmission Date: 20230113
  Serious: Yes (Hospitalization, Other)
  Sender: FDA-Public Use
  Company Number: CA-TEVA-2022-CA-2079106

PATIENT
  Age: 61 Year
  Sex: Female

DRUGS (4)
  1. TADALAFIL [Suspect]
     Active Substance: TADALAFIL
     Indication: Product used for unknown indication
     Route: 065
  2. REMODULIN [Suspect]
     Active Substance: TREPROSTINIL
     Indication: Pulmonary arterial hypertension
     Route: 058
  3. REMODULIN [Suspect]
     Active Substance: TREPROSTINIL
     Route: 058
  4. REMODULIN [Suspect]
     Active Substance: TREPROSTINIL
     Route: 058

REACTIONS (21)
  - Anxiety [Recovered/Resolved]
  - Asthenia [Recovered/Resolved]
  - Bone cancer [Recovered/Resolved]
  - Chest pain [Recovered/Resolved]
  - Cough [Recovered/Resolved]
  - Drug withdrawal syndrome [Recovered/Resolved]
  - Headache [Recovered/Resolved]
  - Infusion site erythema [Recovered/Resolved]
  - Infusion site pain [Recovered/Resolved]
  - Joint swelling [Recovered/Resolved]
  - Lymphadenopathy [Recovered/Resolved]
  - Nasopharyngitis [Recovered/Resolved]
  - Neoplasm malignant [Recovered/Resolved]
  - Nervousness [Recovered/Resolved]
  - Peripheral swelling [Recovered/Resolved]
  - Renal cancer [Recovered/Resolved]
  - Scar [Recovered/Resolved]
  - Skin tightness [Recovered/Resolved]
  - Respiration abnormal [Recovered/Resolved]
  - Heart rate increased [Recovered/Resolved]
  - Weight increased [Recovered/Resolved]
